FAERS Safety Report 21456293 (Version 2)
Quarter: 2022Q4

REPORT INFORMATION
  Report Type: Spontaneous
  Country: US (occurrence: US)
  Receive Date: 20221014
  Receipt Date: 20221108
  Transmission Date: 20230112
  Serious: No
  Sender: FDA-Public Use
  Company Number: US-PFIZER INC-202201182343

PATIENT
  Age: 14 Year
  Sex: Male
  Weight: 65.77 kg

DRUGS (1)
  1. GENOTROPIN [Suspect]
     Active Substance: SOMATROPIN
     Indication: Growth hormone deficiency
     Dosage: 2.8 MG, DAILY (2.8MG EVERY NIGHT)
     Dates: start: 2020

REACTIONS (4)
  - Drug dose omission by device [Not Recovered/Not Resolved]
  - Device power source issue [Not Recovered/Not Resolved]
  - Device information output issue [Not Recovered/Not Resolved]
  - Expired device used [Unknown]

NARRATIVE: CASE EVENT DATE: 20220920
